FAERS Safety Report 9798078 (Version 1)
Quarter: 2014Q1

REPORT INFORMATION
  Report Type: Spontaneous
  Country: US (occurrence: US)
  Receive Date: 20140106
  Receipt Date: 20140106
  Transmission Date: 20141002
  Serious: Yes (Death, Other)
  Sender: FDA-Public Use
  Company Number: US-UCBSA-108193

PATIENT
  Age: 63 Year
  Sex: Male

DRUGS (8)
  1. ACETAMINOPHEN /HYDROCODONE [Suspect]
     Dosage: ROUTE: INGESTION
     Route: 048
  2. ACETAMINOPHEN/PROPOXYPHENE [Suspect]
     Dosage: ROUTE: INGESTION
     Route: 048
  3. NORTRIPTYLINE [Suspect]
     Dosage: ROUTE: INGESTION
     Route: 048
  4. FLURAZEPAM [Suspect]
     Dosage: ROUTE: INGESTION
     Route: 048
  5. ZOLPIDEM [Suspect]
     Dosage: ROUTE: INGESTION
     Route: 048
  6. DIAZEPAM [Suspect]
     Dosage: ROUTE: INGESTION
     Route: 048
  7. TRIAZOLAM [Suspect]
     Dosage: ROUTE: INGESTION
     Route: 048
  8. TEMAZEPAM [Suspect]
     Dosage: ROUTE: INGESTION
     Route: 048

REACTIONS (1)
  - Completed suicide [Fatal]
